FAERS Safety Report 12278965 (Version 2)
Quarter: 2020Q4

REPORT INFORMATION
  Report Type: Report from Study
  Country: US (occurrence: US)
  Receive Date: 20160418
  Receipt Date: 20201109
  Transmission Date: 20210113
  Serious: Yes (Hospitalization, Other)
  Sender: FDA-Public Use
  Company Number: US-AMGEN-USASP2016047595

PATIENT
  Age: 49 Year
  Sex: Female

DRUGS (2)
  1. ENBREL [Suspect]
     Active Substance: ETANERCEPT
     Indication: RHEUMATOID ARTHRITIS
     Dosage: 50 MG, WEEKLY
     Route: 058
     Dates: start: 2014
  2. METHOTREXATE. [Concomitant]
     Active Substance: METHOTREXATE
     Indication: RHEUMATOID ARTHRITIS
     Dosage: UNK, (4 PILLS EACH SUNDAY)
     Route: 048

REACTIONS (6)
  - Peripheral swelling [Unknown]
  - Limb discomfort [Not Recovered/Not Resolved]
  - Illness [Unknown]
  - Knee arthroplasty [Unknown]
  - Weight decreased [Unknown]
  - Adverse event [Unknown]

NARRATIVE: CASE EVENT DATE: 2017
